FAERS Safety Report 4959212-0 (Version None)
Quarter: 2006Q1

REPORT INFORMATION
  Report Type: 
  Country: None (occurrence: None)
  Receive Date: 20060331
  Receipt Date: 20060322
  Transmission Date: 20060701
  Serious: Yes (Other)
  Sender: FDA-Public Use
  Company Number: US-JNJFOC-20051202495

PATIENT
  Sex: Female
  Weight: 84.37 kg

DRUGS (11)
  1. REMICADE [Suspect]
     Route: 042
  2. REMICADE [Suspect]
     Route: 042
  3. REMICADE [Suspect]
     Route: 042
  4. REMICADE [Suspect]
     Route: 042
  5. REMICADE [Suspect]
     Indication: RHEUMATOID ARTHRITIS
     Route: 042
  6. PREDNISONE [Concomitant]
  7. METHOTREXATE [Concomitant]
  8. PLAQUENIL [Concomitant]
  9. VYTONE [Concomitant]
  10. VYTONE [Concomitant]
  11. BENICAR [Concomitant]

REACTIONS (3)
  - GRANULOMA [None]
  - HISTOPLASMOSIS [None]
  - PLEURAL EFFUSION [None]
